FAERS Safety Report 20009174 (Version 1)
Quarter: 2021Q4

REPORT INFORMATION
  Report Type: Spontaneous
  Country: CN (occurrence: CN)
  Receive Date: 20211029
  Receipt Date: 20211029
  Transmission Date: 20220303
  Serious: Yes (Other)
  Sender: FDA-Public Use
  Company Number: CN-ROCHE-2941770

PATIENT
  Age: 50 Year
  Sex: Female

DRUGS (12)
  1. HERCEPTIN [Suspect]
     Active Substance: TRASTUZUMAB
     Indication: Invasive breast carcinoma
     Dosage: 8MG/KG FOR THE FIRST DOSE, 6MG/KG FOR MAINTENANCE
     Route: 065
     Dates: end: 2021
  2. PERJETA [Suspect]
     Active Substance: PERTUZUMAB
     Indication: Invasive breast carcinoma
     Dosage: TRASTUZUMAB + PERTUZUMAB
     Route: 065
     Dates: end: 2021
  3. EPIRUBICIN [Concomitant]
     Active Substance: EPIRUBICIN
     Indication: Invasive breast carcinoma
  4. CYCLOPHOSPHAMIDE [Concomitant]
     Active Substance: CYCLOPHOSPHAMIDE
     Indication: Invasive breast carcinoma
  5. PACLITAXEL [Concomitant]
     Active Substance: PACLITAXEL
     Indication: Invasive breast carcinoma
  6. TAMOXIFEN [Concomitant]
     Active Substance: TAMOXIFEN
     Indication: Invasive breast carcinoma
  7. LEUPROLIDE ACETATE [Concomitant]
     Active Substance: LEUPROLIDE ACETATE
     Indication: Invasive breast carcinoma
  8. EXEMESTANE [Concomitant]
     Active Substance: EXEMESTANE
     Indication: Invasive breast carcinoma
     Dosage: DF=TABLET
  9. ZOLEDRONIC ACID [Concomitant]
     Active Substance: ZOLEDRONIC ACID
     Indication: Invasive breast carcinoma
  10. ZOLEDRONIC ACID [Concomitant]
     Active Substance: ZOLEDRONIC ACID
  11. PYROTINIB [Concomitant]
     Active Substance: PYROTINIB
     Indication: Invasive breast carcinoma
     Route: 048
     Dates: start: 2021
  12. PYROTINIB [Concomitant]
     Active Substance: PYROTINIB
     Dosage: INITIAL DOSE OF 160MG, THEN THE DOSE WAS INCREASED TO 240MG
     Dates: start: 2021

REACTIONS (2)
  - Diarrhoea [Unknown]
  - Acute kidney injury [Recovering/Resolving]

NARRATIVE: CASE EVENT DATE: 20210101
